FAERS Safety Report 4581070-7 (Version None)
Quarter: 2005Q1

REPORT INFORMATION
  Report Type: 
  Country: None (occurrence: None)
  Receive Date: 20050214
  Receipt Date: 20040730
  Transmission Date: 20050727
  Serious: No
  Sender: FDA-Public Use
  Company Number: US-GLAXOSMITHKLINE-A0520368A

PATIENT
  Age: 65 Year
  Sex: Male

DRUGS (5)
  1. LAMICTAL [Suspect]
     Dosage: 25MG PER DAY
     Route: 048
     Dates: start: 20040601, end: 20040701
  2. CARDURA [Concomitant]
  3. PAXIL [Concomitant]
  4. LIPITOR [Concomitant]
  5. GLUCOPHAGE [Concomitant]

REACTIONS (2)
  - EYE PAIN [None]
  - HEADACHE [None]
